FAERS Safety Report 9119971 (Version 1)
Quarter: 2013Q1

REPORT INFORMATION
  Report Type: Spontaneous
  Country: SE (occurrence: None)
  Receive Date: 20130130
  Receipt Date: 20130130
  Transmission Date: 20140127
  Serious: Yes (Hospitalization)
  Sender: FDA-Public Use
  Company Number: SE-1196281

PATIENT
  Age: 46 Year
  Sex: Male

DRUGS (1)
  1. FLUORESCITE 10 % INJECTION (FLUORESCITE 10%) [Suspect]
     Indication: ANGIOGRAM RETINA
     Dosage: (INTRAVENOUS BOLUS)?(02/15/2012  TO  02/15/2012)
     Route: 040
     Dates: start: 20120215, end: 20120215

REACTIONS (2)
  - Cerebrovascular disorder [None]
  - Speech disorder [None]
